FAERS Safety Report 4373801-6 (Version None)
Quarter: 2004Q2

REPORT INFORMATION
  Report Type: 
  Country: None (occurrence: None)
  Receive Date: 20040601
  Receipt Date: 20040129
  Transmission Date: 20050107
  Serious: Yes (Other)
  Sender: FDA-Public Use
  Company Number: A03200400297

PATIENT
  Sex: 0

DRUGS (1)
  1. PLAQUENIL [Suspect]

REACTIONS (1)
  - MACULAR DEGENERATION [None]
